FAERS Safety Report 8589526-7 (Version None)
Quarter: 2012Q3

REPORT INFORMATION
  Report Type: 
  Country: None (occurrence: None)
  Receive Date: 20120813
  Receipt Date: 20120626
  Transmission Date: 20120928
  Serious: Yes (Other)
  Sender: FDA-Public Use
  Company Number: PL-TEVA-352767ISR

PATIENT
  Sex: Female

DRUGS (1)
  1. LEVONORGESTREL [Suspect]
     Indication: POST COITAL CONTRACEPTION
     Dosage: 1.5 MILLIGRAM DAILY;
     Route: 048
     Dates: start: 20120608, end: 20120608

REACTIONS (5)
  - MOOD DISORDER DUE TO A GENERAL MEDICAL CONDITION [None]
  - MUSCLE SPASMS [None]
  - FATIGUE [None]
  - CONVULSION [None]
  - ABDOMINAL PAIN LOWER [None]
